FAERS Safety Report 6660695-9 (Version None)
Quarter: 2010Q1

REPORT INFORMATION
  Report Type: 
  Country: None (occurrence: None)
  Receive Date: 20100331
  Receipt Date: 20100322
  Transmission Date: 20100710
  Serious: Yes (Disabling)
  Sender: FDA-Public Use
  Company Number: AU-ASTRAZENECA-2010SE07912

PATIENT
  Age: 99 Year
  Sex: Male
  Weight: 98 kg

DRUGS (4)
  1. NEXIUM [Suspect]
     Route: 048
     Dates: start: 20090318, end: 20091016
  2. CRESTOR [Concomitant]
     Indication: BLOOD CHOLESTEROL
     Route: 048
  3. SYMBICORT [Concomitant]
     Indication: ASTHMA
     Route: 055
  4. EFFEXOR [Concomitant]
     Indication: DEPRESSION
     Route: 048

REACTIONS (7)
  - CONTUSION [None]
  - COUGH [None]
  - OESOPHAGEAL DISORDER [None]
  - PNEUMONIA [None]
  - VASCULAR INJURY [None]
  - VITAMIN C DEFICIENCY [None]
  - VOMITING [None]
